FAERS Safety Report 12936307 (Version 1)
Quarter: 2016Q4

REPORT INFORMATION
  Report Type: Spontaneous
  Country: US (occurrence: US)
  Receive Date: 20161114
  Receipt Date: 20161114
  Transmission Date: 20170207
  Serious: Yes (Other)
  Sender: FDA-Public Use
  Company Number: US-ELI_LILLY_AND_COMPANY-US201608000180

PATIENT
  Sex: Male
  Weight: 86 kg

DRUGS (5)
  1. OXYCODONE [Concomitant]
     Active Substance: OXYCODONE
     Indication: PAIN
     Dosage: 10 MG, TID
  2. CYMBALTA [Suspect]
     Active Substance: DULOXETINE HYDROCHLORIDE
     Dosage: 100 MG, QD
     Dates: start: 201309
  3. CYMBALTA [Suspect]
     Active Substance: DULOXETINE HYDROCHLORIDE
     Indication: PRODUCT USED FOR UNKNOWN INDICATION
     Dosage: 20 MG, QD
     Route: 048
  4. CYMBALTA [Suspect]
     Active Substance: DULOXETINE HYDROCHLORIDE
     Dosage: 80 MG, QD
  5. CYMBALTA [Suspect]
     Active Substance: DULOXETINE HYDROCHLORIDE
     Dosage: 60 MG, QD
     Route: 048
     Dates: start: 201304, end: 201304

REACTIONS (25)
  - Suicidal ideation [Unknown]
  - Mood swings [Unknown]
  - Feeling of despair [Unknown]
  - Paraesthesia [Unknown]
  - Vertigo [Unknown]
  - Confusional state [Unknown]
  - Somnolence [Unknown]
  - Disturbance in attention [Unknown]
  - Dysphoria [Unknown]
  - Irritability [Unknown]
  - Agitation [Unknown]
  - Feeling abnormal [Unknown]
  - Loss of libido [Unknown]
  - Fatigue [Unknown]
  - Hyperhidrosis [Unknown]
  - Nausea [Unknown]
  - Lethargy [Unknown]
  - Insomnia [Unknown]
  - Drug withdrawal syndrome [Unknown]
  - Decreased appetite [Unknown]
  - Sensory disturbance [Unknown]
  - Balance disorder [Unknown]
  - Tinnitus [Unknown]
  - Dizziness [Unknown]
  - Anxiety [Unknown]

NARRATIVE: CASE EVENT DATE: 2015
